FAERS Safety Report 6844752-X (Version None)
Quarter: 2010Q3

REPORT INFORMATION
  Report Type: 
  Country: None (occurrence: None)
  Receive Date: 20100715
  Receipt Date: 20100713
  Transmission Date: 20110219
  Serious: Yes (Other)
  Sender: FDA-Public Use
  Company Number: US-BRISTOL-MYERS SQUIBB COMPANY-15190655

PATIENT
  Sex: Male

DRUGS (2)
  1. ABILIFY [Suspect]
  2. ZOLOFT [Suspect]
     Dosage: 1 DF= 25MG WITH 3 DAYS OF 12.5MG

REACTIONS (1)
  - WITHDRAWAL SYNDROME [None]
